FAERS Safety Report 10900580 (Version 1)
Quarter: 2015Q1

REPORT INFORMATION
  Report Type: Spontaneous
  Country: US (occurrence: US)
  Receive Date: 20150310
  Receipt Date: 20150310
  Transmission Date: 20150721
  Serious: Yes (Hospitalization)
  Sender: FDA-Public Use
  Company Number: US-ASTRAZENECA-2015SE19883

PATIENT
  Sex: Male
  Weight: 72.6 kg

DRUGS (10)
  1. PULMICORT FLEXHALER [Suspect]
     Active Substance: BUDESONIDE
     Indication: EMPHYSEMA
     Dosage: 180MCG 3 INHALATIONS TWICE DAILY
     Route: 055
  2. WARFARIN [Concomitant]
     Active Substance: WARFARIN
     Indication: ANTICOAGULANT THERAPY
     Dosage: 3 DAYS AT 1/2 PILL OF 2.5MG DAILY AND 4 DAYS AT 1 PILL OF 2.5MG DAILY
  3. FUROSIMIDE [Concomitant]
     Active Substance: FUROSEMIDE
     Indication: FLUID RETENTION
  4. SYMBICORT [Concomitant]
     Active Substance: BUDESONIDE\FORMOTEROL FUMARATE DIHYDRATE
     Dosage: 160/4.5, 2 PUFFS ONCE DAILY
     Route: 055
     Dates: start: 20150301
  5. POT CHLORIDE [Concomitant]
     Active Substance: POTASSIUM CHLORIDE
     Indication: FLUID RETENTION
     Dosage: DAILY
  6. GLIPIZIDE. [Concomitant]
     Active Substance: GLIPIZIDE
     Indication: DIABETES MELLITUS
  7. SYMBICORT [Concomitant]
     Active Substance: BUDESONIDE\FORMOTEROL FUMARATE DIHYDRATE
     Dosage: 160/4.5, 2 PUFFS ONCE DAILY
     Route: 055
  8. PULMICORT FLEXHALER [Suspect]
     Active Substance: BUDESONIDE
     Indication: ASTHMA
     Dosage: 180MCG 3 INHALATIONS TWICE DAILY
     Route: 055
  9. METOPROLOL TART [Concomitant]
     Active Substance: METOPROLOL TARTRATE
     Indication: CARDIAC DISORDER
  10. MULTIVITAMIN [Concomitant]
     Active Substance: VITAMINS

REACTIONS (1)
  - Lung infection [Unknown]
